FAERS Safety Report 23422724 (Version 1)
Quarter: 2024Q1

REPORT INFORMATION
  Report Type: Spontaneous
  Country: US (occurrence: None)
  Receive Date: 20240118
  Receipt Date: 20240118
  Transmission Date: 20240409
  Serious: Yes (Other)
  Sender: FDA-Public Use
  Company Number: None

PATIENT
  Age: 85 Year
  Sex: Female
  Weight: 65.77 kg

DRUGS (4)
  1. PAXLOVID [Suspect]
     Active Substance: NIRMATRELVIR\RITONAVIR
     Indication: COVID-19
     Dosage: FREQUENCY : TWICE A DAY;?
     Route: 048
     Dates: start: 20231202, end: 20231204
  2. RAMIPRIL [Concomitant]
     Active Substance: RAMIPRIL
  3. PROBIOTICS NOS [Concomitant]
     Active Substance: PROBIOTICS NOS
  4. multi-vitamin w/o iron [Concomitant]

REACTIONS (3)
  - Rectal discharge [None]
  - Anorectal discomfort [None]
  - Rectal haemorrhage [None]

NARRATIVE: CASE EVENT DATE: 20231205
